FAERS Safety Report 9473664 (Version 1)
Quarter: 2013Q3

REPORT INFORMATION
  Report Type: Spontaneous
  Country: NL (occurrence: NL)
  Receive Date: 20130823
  Receipt Date: 20130823
  Transmission Date: 20140515
  Serious: Yes (Hospitalization)
  Sender: FDA-Public Use
  Company Number: NL-TEVA-426862ISR

PATIENT
  Age: 26 Year
  Sex: Female

DRUGS (2)
  1. TRIMETHOPRIM TABLET 300MG [Suspect]
     Indication: URINARY TRACT INFECTION
     Dosage: 300 MILLIGRAM DAILY; ONCE DAILY ONE TABLET
     Route: 048
     Dates: start: 20130721, end: 20130721
  2. ETHINYLESTRADIOL/LEVONORGESTREL TABLET 30/150UG [Concomitant]
     Dosage: ONCE DAILY ONE TABLET
     Route: 048
     Dates: start: 20000703

REACTIONS (3)
  - Syncope [Recovered/Resolved]
  - Nausea [Recovered/Resolved]
  - Dizziness [Recovered/Resolved]
